FAERS Safety Report 19768635 (Version 2)
Quarter: 2022Q1

REPORT INFORMATION
  Report Type: Spontaneous
  Country: FR (occurrence: None)
  Receive Date: 20210830
  Receipt Date: 20220127
  Transmission Date: 20220423
  Serious: Yes (Life-Threatening, Other)
  Sender: FDA-Public Use
  Company Number: FR-MERCK HEALTHCARE KGAA-9261898

PATIENT
  Age: 65 Year
  Sex: Male
  Weight: 80 kg

DRUGS (26)
  1. METFORMIN HYDROCHLORIDE [Suspect]
     Active Substance: METFORMIN HYDROCHLORIDE
     Indication: Diabetes mellitus
     Route: 065
     Dates: start: 2019, end: 20210130
  2. METFORMIN HYDROCHLORIDE [Suspect]
     Active Substance: METFORMIN HYDROCHLORIDE
     Route: 048
     Dates: start: 2019, end: 20210130
  3. BISOPROLOL [Suspect]
     Active Substance: BISOPROLOL
     Indication: Hypertension
     Route: 048
     Dates: start: 2014, end: 20210130
  4. RAMIPRIL [Suspect]
     Active Substance: RAMIPRIL
     Indication: Hypertension
     Route: 048
     Dates: end: 20210130
  5. PANTOPRAZOLE [Suspect]
     Active Substance: PANTOPRAZOLE
     Indication: Gastrooesophageal reflux disease
     Dosage: 1 DOSAGE FORM, QD
     Route: 065
     Dates: start: 2019, end: 20210130
  6. PANTOPRAZOLE [Suspect]
     Active Substance: PANTOPRAZOLE
     Route: 048
     Dates: start: 2019, end: 20210130
  7. FUROSEMIDE [Suspect]
     Active Substance: FUROSEMIDE
     Indication: Diuretic therapy
     Route: 065
     Dates: start: 2014, end: 20210130
  8. FUROSEMIDE [Suspect]
     Active Substance: FUROSEMIDE
     Route: 048
     Dates: end: 20210130
  9. BROMAZEPAM [Suspect]
     Active Substance: BROMAZEPAM
     Indication: Product used for unknown indication
     Route: 048
     Dates: start: 2019, end: 20210130
  10. MONTELUKAST [Suspect]
     Active Substance: MONTELUKAST SODIUM
     Indication: Product used for unknown indication
     Route: 048
     Dates: start: 2019, end: 20210103
  11. MONTELUKAST [Suspect]
     Active Substance: MONTELUKAST SODIUM
     Route: 048
     Dates: start: 2019, end: 20210130
  12. BISOPROLOL [Suspect]
     Active Substance: BISOPROLOL
     Indication: Hypertension
     Route: 065
     Dates: start: 2014, end: 20210130
  13. LACTULOSE [Suspect]
     Active Substance: LACTULOSE
     Indication: Laxative supportive care
     Route: 065
     Dates: start: 2019, end: 20210130
  14. LACTULOSE [Suspect]
     Active Substance: LACTULOSE
     Route: 048
     Dates: end: 20210130
  15. FLUTICASONE\FORMOTEROL [Suspect]
     Active Substance: FLUTICASONE\FORMOTEROL
     Indication: Product used for unknown indication
     Dosage: 500 UG AND 50 UG/DOSE
     Route: 065
     Dates: start: 2019, end: 20210130
  16. ASPIRIN DL-LYSINE [Suspect]
     Active Substance: ASPIRIN DL-LYSINE
     Indication: Antiplatelet therapy
     Route: 065
     Dates: start: 2019, end: 20210130
  17. DIGOXIN [Suspect]
     Active Substance: DIGOXIN
     Indication: Arrhythmia
     Dosage: 1 DOSAGE FORM, QD
     Route: 065
     Dates: start: 2009, end: 20210130
  18. DIGOXIN [Suspect]
     Active Substance: DIGOXIN
     Route: 048
     Dates: start: 2009, end: 20210130
  19. PYRIDOXINE HYDROCHLORIDE\THIAMINE HYDROCHLORIDE [Suspect]
     Active Substance: PYRIDOXINE HYDROCHLORIDE\THIAMINE HYDROCHLORIDE
     Indication: Product used for unknown indication
     Dosage: 250 MG AND 50 MG
     Route: 065
     Dates: start: 2014, end: 20210130
  20. INNOHEP [Suspect]
     Active Substance: TINZAPARIN SODIUM
     Indication: Coagulopathy
     Route: 065
  21. INNOHEP [Suspect]
     Active Substance: TINZAPARIN SODIUM
     Route: 058
  22. KARDEGIC [Suspect]
     Active Substance: ASPIRIN DL-LYSINE
     Indication: Antiplatelet therapy
     Route: 048
     Dates: end: 20210130
  23. SERETIDE [Suspect]
     Active Substance: FLUTICASONE PROPIONATE\SALMETEROL XINAFOATE
     Indication: Product used for unknown indication
     Route: 010
     Dates: start: 2019, end: 20210130
  24. PYRIDOXINE\THIAMINE [Suspect]
     Active Substance: PYRIDOXINE\THIAMINE
     Indication: Product used for unknown indication
     Route: 048
     Dates: start: 2014, end: 20210130
  25. RAMIPRIL [Suspect]
     Active Substance: RAMIPRIL
     Indication: Hypertension
     Route: 065
     Dates: start: 2014, end: 20210130
  26. ACETAMINOPHEN [Concomitant]
     Active Substance: ACETAMINOPHEN
     Indication: Product used for unknown indication

REACTIONS (6)
  - Ischaemic hepatitis [Unknown]
  - Inflammation [Unknown]
  - General physical health deterioration [Unknown]
  - Acute kidney injury [Recovering/Resolving]
  - Lactic acidosis [Recovered/Resolved]
  - Incorrect product administration duration [Unknown]

NARRATIVE: CASE EVENT DATE: 20190101
